FAERS Safety Report 7989726-0 (Version None)
Quarter: 2011Q4

REPORT INFORMATION
  Report Type: 
  Country: None (occurrence: None)
  Receive Date: 20111219
  Receipt Date: 20111206
  Transmission Date: 20120403
  Serious: Yes (Other)
  Sender: FDA-Public Use
  Company Number: US-ELI_LILLY_AND_COMPANY-US201108003631

PATIENT
  Sex: Female

DRUGS (3)
  1. FORTEO [Suspect]
     Dosage: 20 UG, QD
  2. FORTEO [Suspect]
     Indication: OSTEOPOROSIS
     Dosage: 20 UG, QD
  3. FORTEO [Suspect]
     Dosage: 20 UG, QD

REACTIONS (7)
  - MEMORY IMPAIRMENT [None]
  - FATIGUE [None]
  - NERVOUS SYSTEM DISORDER [None]
  - CEREBROVASCULAR ACCIDENT [None]
  - MUSCULOSKELETAL DISCOMFORT [None]
  - UPPER LIMB FRACTURE [None]
  - FALL [None]
